FAERS Safety Report 5481061-8 (Version None)
Quarter: 2007Q4

REPORT INFORMATION
  Report Type: 
  Country: None (occurrence: None)
  Receive Date: 20071004
  Receipt Date: 20070924
  Transmission Date: 20080405
  Serious: Yes (Hospitalization)
  Sender: FDA-Public Use
  Company Number: 238157K07USA

PATIENT
  Age: 64 Year
  Sex: Female

DRUGS (12)
  1. REBIF [Suspect]
     Indication: MULTIPLE SCLEROSIS
     Dosage: 44 MCG, 3 IN 1 WEEKS, SUBCUTANEOUS
     Route: 058
     Dates: start: 20020603
  2. PREDNISONE [Suspect]
     Dates: end: 20070901
  3. WELLBUTRIN [Suspect]
     Dates: end: 20070901
  4. FENTANYL [Suspect]
     Dates: start: 20070601, end: 20070901
  5. AMBIEN CR [Suspect]
     Dates: start: 20070601, end: 20070901
  6. ADVAIR (SERETIDE) [Concomitant]
  7. PROVENTIL [Suspect]
  8. SPIRIVA [Concomitant]
  9. RESTORIL [Concomitant]
  10. ASPIRIN [Concomitant]
  11. TOPROL-XL [Concomitant]
  12. COUMADIN [Concomitant]

REACTIONS (7)
  - BREAKTHROUGH PAIN [None]
  - CRANIAL NERVE DISORDER [None]
  - DYSKINESIA [None]
  - FACIAL PAIN [None]
  - OBSTRUCTIVE CHRONIC BRONCHITIS WITH ACUTE EXACERBATION [None]
  - PAIN IN JAW [None]
  - SHARED PSYCHOTIC DISORDER [None]
